FAERS Safety Report 13347880 (Version 1)
Quarter: 2017Q1

REPORT INFORMATION
  Report Type: Report from Study
  Country: US (occurrence: US)
  Receive Date: 20170317
  Receipt Date: 20170317
  Transmission Date: 20170428
  Serious: Yes (Disabling)
  Sender: FDA-Public Use
  Company Number: US-GILEAD-2017-0251739

PATIENT
  Age: 70 Year
  Sex: Female
  Weight: 79.82 kg

DRUGS (15)
  1. SIMVASTATIN. [Concomitant]
     Active Substance: SIMVASTATIN
  2. SILDENAFIL CITRATE. [Concomitant]
     Active Substance: SILDENAFIL CITRATE
  3. VENTOLIN [Concomitant]
     Active Substance: ALBUTEROL SULFATE
  4. MYCOPHENOLATE [Concomitant]
     Active Substance: MYCOPHENOLIC ACID
  5. PREDNISONE. [Concomitant]
     Active Substance: PREDNISONE
  6. PANTOPRAZOLE [Concomitant]
     Active Substance: PANTOPRAZOLE SODIUM
  7. POTASSIUM CHLORIDE. [Concomitant]
     Active Substance: POTASSIUM CHLORIDE
  8. SELEXIPAG [Concomitant]
     Active Substance: SELEXIPAG
  9. METOPROLOL. [Concomitant]
     Active Substance: METOPROLOL
  10. LISINOPRIL. [Concomitant]
     Active Substance: LISINOPRIL
  11. LASIX [Concomitant]
     Active Substance: FUROSEMIDE
  12. TORSEMIDE. [Concomitant]
     Active Substance: TORSEMIDE
  13. AMBRISENTAN [Suspect]
     Active Substance: AMBRISENTAN
     Indication: CONNECTIVE TISSUE DISORDER
     Dosage: 5 MG, QD
     Route: 048
  14. AMBRISENTAN [Suspect]
     Active Substance: AMBRISENTAN
     Indication: SCLERODERMA
  15. AMBRISENTAN [Suspect]
     Active Substance: AMBRISENTAN
     Indication: PULMONARY ARTERIAL HYPERTENSION
     Dosage: 10 MG, QD
     Route: 048

REACTIONS (4)
  - Dyspnoea [Recovered/Resolved]
  - Gout [Recovered/Resolved]
  - Fluid retention [Not Recovered/Not Resolved]
  - Unevaluable event [Unknown]

NARRATIVE: CASE EVENT DATE: 20161121
